FAERS Safety Report 9580599 (Version 4)
Quarter: 2013Q4

REPORT INFORMATION
  Report Type: Report from Study
  Country: JP (occurrence: JP)
  Receive Date: 20131002
  Receipt Date: 20131028
  Transmission Date: 20140711
  Serious: Yes (Death)
  Sender: FDA-Public Use
  Company Number: JP-ROCHE-1283004

PATIENT
  Age: 66 Year
  Sex: Female
  Weight: 41 kg

DRUGS (2)
  1. TRASTUZUMAB EMTANSINE [Suspect]
     Indication: GASTRIC CANCER
     Dosage: LAST DOSE TAKEN: 158MG?MOST RECENT DOSE OF TDM1 PRIOR TO SAE: 25/SEP/2013
     Route: 042
     Dates: start: 20130724
  2. TAKEPRON [Concomitant]
     Indication: GASTRITIS
     Route: 065
     Dates: start: 20130711

REACTIONS (1)
  - Subarachnoid haemorrhage [Fatal]
